FAERS Safety Report 8336595-5 (Version None)
Quarter: 2012Q1

REPORT INFORMATION
  Report Type: 
  Country: None (occurrence: None)
  Receive Date: 20120329
  Receipt Date: 20100303
  Transmission Date: 20120608
  Serious: Yes (Hospitalization, Other)
  Sender: FDA-Public Use
  Company Number: PHEH2010US02862

PATIENT
  Sex: Female

DRUGS (8)
  1. ANTIHYPERTENSIVE DRUGS (NO INGREDIENTS/SUBSTANCES) [Concomitant]
  2. PLAVIX [Concomitant]
  3. PAXIL [Concomitant]
  4. HYDROCODONE BITARTRATE [Concomitant]
  5. EXELON [Suspect]
     Dosage: 4.6MG, TRANSDERMAL
     Route: 062
  6. ZOCOR [Concomitant]
  7. GLUCOPHAGE [Concomitant]
  8. MOBIC [Concomitant]

REACTIONS (3)
  - VOMITING [None]
  - NAUSEA [None]
  - BLOOD SODIUM DECREASED [None]
